FAERS Safety Report 16671990 (Version 1)
Quarter: 2019Q3

REPORT INFORMATION
  Report Type: Spontaneous
  Country: IT (occurrence: IT)
  Receive Date: 20190806
  Receipt Date: 20190806
  Transmission Date: 20191004
  Serious: Yes (Hospitalization)
  Sender: FDA-Public Use
  Company Number: IT-SUN PHARMACEUTICAL INDUSTRIES LTD-2019RR-216459

PATIENT
  Age: 79 Year
  Sex: Female

DRUGS (5)
  1. DELTACORTENE 25 MG COMPRESSE [Suspect]
     Active Substance: PREDNISONE
     Indication: BRONCHOSPASM
     Dosage: 50 MILLIGRAM, DAILY
     Route: 048
     Dates: start: 20190305, end: 20190510
  2. CITALOPRAM [Suspect]
     Active Substance: CITALOPRAM HYDROBROMIDE
     Indication: NEURALGIA
     Dosage: 40 MILLIGRAM, DAILY
     Route: 048
     Dates: start: 20160101, end: 20190510
  3. XANAX [Concomitant]
     Active Substance: ALPRAZOLAM
     Indication: PRODUCT USED FOR UNKNOWN INDICATION
     Dosage: 0.75 MILLIGRAM, UNK
     Route: 048
  4. RAMIPRIL ACTAVIS [Concomitant]
     Active Substance: RAMIPRIL
     Indication: PRODUCT USED FOR UNKNOWN INDICATION
     Dosage: ()
     Route: 065
  5. AMLODIPINA AUROBINDO ITALIA 10 MG COMPRESSE [Concomitant]
     Indication: PRODUCT USED FOR UNKNOWN INDICATION
     Dosage: 10 MILLIGRAM, UNK
     Route: 048

REACTIONS (5)
  - Confusional state [Not Recovered/Not Resolved]
  - Injury [Not Recovered/Not Resolved]
  - Anaemia [Not Recovered/Not Resolved]
  - Arthralgia [Not Recovered/Not Resolved]
  - Fall [Not Recovered/Not Resolved]

NARRATIVE: CASE EVENT DATE: 20190510
